FAERS Safety Report 10686271 (Version 1)
Quarter: 2014Q4

REPORT INFORMATION
  Report Type: Spontaneous
  Country: US (occurrence: US)
  Receive Date: 20141231
  Receipt Date: 20141231
  Transmission Date: 20150529
  Serious: No
  Sender: FDA-Public Use
  Company Number: US-B.I. PHARMACEUTICALS,INC./RIDGEFIELD-2014-BI-61479BP

PATIENT
  Age: 47 Year
  Sex: Male
  Weight: 104.33 kg

DRUGS (6)
  1. ERTACZO [Concomitant]
     Active Substance: SERTACONAZOLE NITRATE
     Indication: SKIN EXFOLIATION
     Route: 061
     Dates: start: 2009
  2. ECONZAOLE [Concomitant]
     Indication: DERMATITIS INFECTED
     Route: 061
     Dates: start: 2010
  3. NABUMETONE. [Concomitant]
     Active Substance: NABUMETONE
     Indication: FIBROMYALGIA
     Dosage: 1400 MG
     Route: 048
     Dates: start: 1998
  4. ZANTAC [Suspect]
     Active Substance: RANITIDINE HYDROCHLORIDE
     Indication: GASTROOESOPHAGEAL REFLUX DISEASE
     Dosage: 600 MG
     Route: 048
     Dates: start: 201204
  5. BEPREVE [Concomitant]
     Active Substance: BEPOTASTINE\BEPOTASTINE BESILATE
     Indication: EYE PRURITUS
     Dosage: STRENGTH: 1 DROP BOTH EYES
     Route: 050
     Dates: start: 2011
  6. VITAMIN D [Concomitant]
     Active Substance: CHOLECALCIFEROL
     Indication: CALCIUM DEFICIENCY
     Dosage: 2000 U
     Route: 048

REACTIONS (8)
  - Chest discomfort [Recovered/Resolved]
  - Off label use [Unknown]
  - Product quality issue [Unknown]
  - Prescribed overdose [Unknown]
  - Eructation [Not Recovered/Not Resolved]
  - Abdominal distension [Recovered/Resolved]
  - Dyspnoea [Recovered/Resolved]
  - Drug ineffective [Not Recovered/Not Resolved]

NARRATIVE: CASE EVENT DATE: 201204
